FAERS Safety Report 8989635 (Version 1)
Quarter: 2012Q4

REPORT INFORMATION
  Report Type: 
  Country: US (occurrence: US)
  Receive Date: 20121228
  Receipt Date: 20121228
  Transmission Date: 20130627
  Serious: No
  Sender: FDA-Public Use
  Company Number: US-009507513-1212USA009631

PATIENT
  Age: 48 Year
  Sex: Female
  Weight: 69.39 kg

DRUGS (1)
  1. IMPLANON [Suspect]
     Indication: CONTRACEPTION
     Dosage: every 3 years
     Route: 059
     Dates: start: 20111224

REACTIONS (3)
  - Infection [Unknown]
  - Menorrhagia [Not Recovered/Not Resolved]
  - Back pain [Unknown]
